FAERS Safety Report 19458126 (Version 1)
Quarter: 2021Q2

REPORT INFORMATION
  Report Type: Spontaneous
  Country: IN (occurrence: IN)
  Receive Date: 20210624
  Receipt Date: 20210624
  Transmission Date: 20210717
  Serious: Yes (Death, Life-Threatening, Hospitalization, Other)
  Sender: FDA-Public Use
  Company Number: IN-TAKEDA-2021TUS039423

PATIENT
  Age: 55 Year
  Sex: Male

DRUGS (5)
  1. VELCADE [Suspect]
     Active Substance: BORTEZOMIB
     Dosage: UNK
     Route: 065
     Dates: start: 201810
  2. DEXAMETHASONE. [Suspect]
     Active Substance: DEXAMETHASONE
     Dosage: UNK
     Route: 065
     Dates: start: 2018
  3. DEXAMETHASONE. [Suspect]
     Active Substance: DEXAMETHASONE
     Indication: PLASMA CELL MYELOMA
     Dosage: 20 MILLIGRAM
     Route: 065
     Dates: start: 201810
  4. VELCADE [Suspect]
     Active Substance: BORTEZOMIB
     Indication: PLASMA CELL MYELOMA
     Dosage: UNK
     Route: 065
     Dates: start: 2018
  5. MELPHALAN. [Suspect]
     Active Substance: MELPHALAN
     Indication: PLASMA CELL MYELOMA
     Dosage: UNK
     Route: 065
     Dates: start: 20190222, end: 20190223

REACTIONS (8)
  - Haemophagocytic lymphohistiocytosis [Unknown]
  - Acute respiratory distress syndrome [Fatal]
  - Febrile neutropenia [Fatal]
  - Acute kidney injury [Fatal]
  - Mucosal inflammation [Unknown]
  - Metapneumovirus infection [Fatal]
  - Atrial fibrillation [Unknown]
  - Klebsiella sepsis [Fatal]

NARRATIVE: CASE EVENT DATE: 20190226
